FAERS Safety Report 10003329 (Version 10)
Quarter: 2014Q2

REPORT INFORMATION
  Report Type: Report from Study
  Country: IT (occurrence: IT)
  Receive Date: 20140312
  Receipt Date: 20140617
  Transmission Date: 20141212
  Serious: Yes (Hospitalization, Other)
  Sender: FDA-Public Use
  Company Number: IT-B.I. PHARMACEUTICALS,INC./RIDGEFIELD-2014-BI-09771BI

PATIENT
  Age: 79 Year
  Sex: Female
  Weight: 61 kg

DRUGS (19)
  1. BIBW 2992 [Suspect]
     Indication: NON-SMALL CELL LUNG CANCER METASTATIC
     Dosage: 40 MG
     Route: 048
     Dates: start: 20140217, end: 20140303
  2. BIBW 2992 [Suspect]
     Dosage: 30 MG
     Route: 048
     Dates: start: 20140311, end: 20140325
  3. ZOLPIDEM [Concomitant]
     Indication: INSOMNIA
     Dosage: 10 MG
     Route: 065
  4. INSULIN GLULISINE [Concomitant]
     Indication: DIABETES MELLITUS
     Dosage: 22 U
     Route: 058
     Dates: start: 2010
  5. INSULIN GLARGINE [Concomitant]
     Indication: DIABETES MELLITUS
     Dosage: 12 U
     Route: 058
     Dates: start: 2010
  6. NEBIVOLOL [Concomitant]
     Indication: HYPERTENSION
     Dosage: 5 MG
     Route: 065
  7. IRBESARTAN [Concomitant]
     Indication: HYPERTENSION
     Dosage: 300 MG
     Route: 065
  8. IRBESARTAN [Concomitant]
     Dosage: 600 MG
     Route: 065
  9. IDROCLOROTIAZIDE [Concomitant]
     Indication: HYPERTENSION
     Dosage: 25 MG
     Route: 048
  10. OSSICODONE [Concomitant]
     Indication: PAIN
     Dosage: 10 MG
     Route: 065
  11. PARACETAMOLO [Concomitant]
     Indication: PAIN
     Dosage: 650 MG
     Route: 065
  12. PARACETAMOLO [Concomitant]
     Dosage: 325 MG
     Route: 065
     Dates: start: 20140325
  13. LANSOPRAZOLO [Concomitant]
     Indication: PROPHYLAXIS
     Dosage: 30 MG
     Route: 065
     Dates: start: 20140402
  14. ALLOPURINOLO [Concomitant]
     Indication: BLOOD URIC ACID INCREASED
     Dosage: 100 MG
     Route: 065
     Dates: start: 20140327
  15. POTASSIUM CHLORIDE [Concomitant]
     Indication: FLUID REPLACEMENT
     Dosage: 600 MG
     Route: 065
     Dates: start: 20140329
  16. NORITREN [Concomitant]
     Indication: DEPRESSION
     Dosage: 10 MG
     Route: 065
     Dates: start: 20140326
  17. CALCIUM CARBONATE [Concomitant]
     Indication: PROPHYLAXIS
     Dosage: 500 MG
     Route: 065
     Dates: start: 20140328
  18. FUROSEMIDE [Concomitant]
     Indication: OEDEMA
     Dosage: 25 MG
     Route: 065
     Dates: start: 20140401, end: 20140402
  19. RANITIDINA [Concomitant]
     Indication: PROPHYLAXIS
     Dosage: 50 MG
     Route: 050

REACTIONS (9)
  - Diarrhoea [Recovered/Resolved]
  - Blood creatinine increased [Recovered/Resolved]
  - C-reactive protein increased [Recovered/Resolved]
  - Dysuria [Recovered/Resolved]
  - Abdominal pain [Recovered/Resolved]
  - Asthenia [Recovered/Resolved]
  - Pyrexia [Recovered/Resolved]
  - Weight decreased [Not Recovered/Not Resolved]
  - Pleural effusion [Recovered/Resolved]
